FAERS Safety Report 7953912-6 (Version None)
Quarter: 2011Q4

REPORT INFORMATION
  Report Type: 
  Country: None (occurrence: None)
  Receive Date: 20111202
  Receipt Date: 20111125
  Transmission Date: 20120403
  Serious: Yes (Hospitalization)
  Sender: FDA-Public Use
  Company Number: AU-AMGEN-AUSSP2011062269

PATIENT
  Age: 62 Year
  Sex: Male
  Weight: 150 kg

DRUGS (2)
  1. ENBREL [Suspect]
     Dosage: 50 MG, WEEKLY
     Route: 058
  2. ENBREL [Suspect]
     Indication: RHEUMATOID ARTHRITIS
     Dosage: 50 MG WEEKLY
     Route: 030

REACTIONS (3)
  - MALAISE [None]
  - DRUG PRESCRIBING ERROR [None]
  - INCORRECT ROUTE OF DRUG ADMINISTRATION [None]
